FAERS Safety Report 9826878 (Version 1)
Quarter: 2013Q4

REPORT INFORMATION
  Report Type: Spontaneous
  Country: GB (occurrence: None)
  Receive Date: 20131112
  Receipt Date: 20131112
  Transmission Date: 20140711
  Serious: Yes (Other)
  Sender: FDA-Public Use
  Company Number: E2B_00000893

PATIENT
  Age: 62 Year
  Sex: Male
  Weight: 89 kg

DRUGS (8)
  1. LISINOPRIL (UNKNOWN) (LISINOPRIL) [Suspect]
     Indication: PRODUCT USED FOR UNKNOWN INDICATION
     Dosage: UNKNOWN (UNKNOWN, UNKNOWN), UNKNOWN
     Dates: start: 20130214
  2. LERCANIDIPINE HYDROCHLORIDE (UNKNOWN) [Concomitant]
  3. OMEPRAZOLE (UNKNOWN) [Concomitant]
  4. INDAPAMIDE (UNKNOWN) [Concomitant]
  5. FLUTICASONE (UNKNOWN) [Concomitant]
  6. DEXAMETHASONE (UNKNOWN) [Concomitant]
  7. LOSARTAN (UNKNOWN) (LOSARTAN) [Concomitant]
  8. SIMVASTATIN (UNKNOWN) (SIMVASTATIN) UNK, UNKUNK [Concomitant]

REACTIONS (1)
  - Cough [None]
